FAERS Safety Report 25748597 (Version 1)
Quarter: 2025Q3

REPORT INFORMATION
  Report Type: Spontaneous
  Country: US (occurrence: US)
  Receive Date: 20250902
  Receipt Date: 20250902
  Transmission Date: 20251021
  Serious: Yes (Hospitalization)
  Sender: Onesource Specialty Pharma
  Company Number: US-STRIDES ARCOLAB LIMITED-2025OS000120

PATIENT
  Age: 68 Year
  Sex: Male

DRUGS (3)
  1. NAPROXEN [Suspect]
     Active Substance: NAPROXEN
     Indication: Musculoskeletal chest pain
     Route: 048
  2. CAPSAICIN [Suspect]
     Active Substance: CAPSAICIN
     Indication: Musculoskeletal chest pain
     Route: 065
  3. CYCLOBENZAPRINE [Suspect]
     Active Substance: CYCLOBENZAPRINE
     Indication: Musculoskeletal chest pain
     Route: 048

REACTIONS (1)
  - Drug ineffective for unapproved indication [Unknown]
